FAERS Safety Report 4422446-8 (Version None)
Quarter: 2004Q3

REPORT INFORMATION
  Report Type: 
  Country: None (occurrence: None)
  Receive Date: 20040806
  Receipt Date: 20040803
  Transmission Date: 20050211
  Serious: Yes (Hospitalization)
  Sender: FDA-Public Use
  Company Number: 2004224320US

PATIENT
  Sex: Female

DRUGS (1)
  1. DEPO-PROVERA [Suspect]
     Indication: CONTRACEPTION
     Dosage: 150 MG, 1ST INJECTION
     Dates: start: 20040716, end: 20040716

REACTIONS (10)
  - ANAPHYLACTIC SHOCK [None]
  - BLOOD GLUCOSE INCREASED [None]
  - BLOOD PRESSURE IMMEASURABLE [None]
  - CONFUSIONAL STATE [None]
  - EYE SWELLING [None]
  - IATROGENIC INJURY [None]
  - LOSS OF CONSCIOUSNESS [None]
  - MEDICATION ERROR [None]
  - SWELLING FACE [None]
  - TREMOR [None]
